FAERS Safety Report 15917412 (Version 1)
Quarter: 2019Q1

REPORT INFORMATION
  Report Type: Spontaneous
  Country: US (occurrence: US)
  Receive Date: 20190205
  Receipt Date: 20190205
  Transmission Date: 20190417
  Serious: No
  Sender: FDA-Public Use
  Company Number: US-GLENMARK PHARMACEUTICALS-2018GMK038839

PATIENT

DRUGS (1)
  1. COLESEVELAM HYDROCHLORIDE FOR ORAL SUSUPENSION [Suspect]
     Active Substance: COLESEVELAM HYDROCHLORIDE
     Indication: BLOOD CHOLESTEROL
     Dosage: 3.75 MG, OD
     Route: 048
     Dates: start: 20181204

REACTIONS (5)
  - Poor quality product administered [Unknown]
  - No adverse event [Unknown]
  - Product taste abnormal [Unknown]
  - Wrong technique in product usage process [Unknown]
  - Product solubility abnormal [Unknown]

NARRATIVE: CASE EVENT DATE: 20181204
